FAERS Safety Report 22321884 (Version 2)
Quarter: 2025Q3

REPORT INFORMATION
  Report Type: Spontaneous
  Country: EU (occurrence: EU)
  Receive Date: 20230516
  Receipt Date: 20250721
  Transmission Date: 20251020
  Serious: Yes (Life-Threatening, Hospitalization, Disabling, Other)
  Sender: AUROBINDO
  Company Number: EU-Rivopharm Ltd.-000283

PATIENT
  Age: 27 Year
  Sex: Male

DRUGS (3)
  1. OLANZAPINE [Suspect]
     Active Substance: OLANZAPINE
     Indication: Behaviour disorder
     Dosage: SEVERAL YEARS OF TREATMENT
     Route: 065
  2. RISPERIDONE [Suspect]
     Active Substance: RISPERIDONE
     Indication: Behaviour disorder
     Dosage: 2 MILLIGRAM, ONCE A DAY, SWITCHED FROM OLANZAPINE
     Route: 065
  3. HALOPERIDOL [Suspect]
     Active Substance: HALOPERIDOL
     Indication: Aggression
     Dosage: 10 MILLIGRAM, ONCE A DAY
     Route: 065

REACTIONS (1)
  - Neuroleptic malignant syndrome [Recovered/Resolved with Sequelae]
